FAERS Safety Report 16297038 (Version 5)
Quarter: 2020Q3

REPORT INFORMATION
  Report Type: Spontaneous
  Country: FR (occurrence: FR)
  Receive Date: 20190510
  Receipt Date: 20200725
  Transmission Date: 20201102
  Serious: Yes (Other)
  Sender: FDA-Public Use
  Company Number: PHHY2019FR103606

PATIENT
  Sex: Male
  Weight: 110 kg

DRUGS (13)
  1. PERMIXON [Concomitant]
     Active Substance: HERBALS\SAW PALMETTO
     Indication: PRODUCT USED FOR UNKNOWN INDICATION
     Dosage: UNK
     Route: 065
  2. NORFLOXACIN [Suspect]
     Active Substance: NORFLOXACIN
     Indication: PROSTATITIS
     Dosage: 800 MG, QD
     Route: 048
     Dates: start: 20110318, end: 20110501
  3. OFLOXACIN. [Suspect]
     Active Substance: OFLOXACIN
     Indication: ESCHERICHIA URINARY TRACT INFECTION
     Dosage: 400 MG, QD
     Route: 048
     Dates: start: 20110115, end: 20110315
  4. OFLOCET [Suspect]
     Active Substance: OFLOXACIN
     Indication: LIGAMENT OPERATION
     Dosage: UNK
     Route: 001
     Dates: start: 200408
  5. ODRIK [Concomitant]
     Active Substance: TRANDOLAPRIL
     Indication: PRODUCT USED FOR UNKNOWN INDICATION
     Dosage: UNK
     Route: 065
  6. ESIDREX [Concomitant]
     Active Substance: HYDROCHLOROTHIAZIDE
     Indication: PRODUCT USED FOR UNKNOWN INDICATION
     Dosage: UNK
     Route: 065
  7. OFLOCET [Suspect]
     Active Substance: OFLOXACIN
     Indication: OTITIS EXTERNA
     Dosage: UNK UNK, QD
     Route: 048
     Dates: start: 1998
  8. OFLOCET [Suspect]
     Active Substance: OFLOXACIN
     Dosage: 2 DF, QD
     Route: 048
     Dates: start: 20110114, end: 20111021
  9. TRIMEBUTINE [Concomitant]
     Active Substance: TRIMEBUTINE
     Indication: PRODUCT USED FOR UNKNOWN INDICATION
     Dosage: UNK
     Route: 065
  10. LOXEN [Concomitant]
     Indication: PRODUCT USED FOR UNKNOWN INDICATION
     Dosage: UNK
     Route: 065
  11. AVLOCARDYL [Concomitant]
     Active Substance: PROPRANOLOL HYDROCHLORIDE
     Indication: PRODUCT USED FOR UNKNOWN INDICATION
     Dosage: UNK
     Route: 065
  12. OFLOCET [Suspect]
     Active Substance: OFLOXACIN
     Indication: CYSTITIS
     Dosage: UNK
     Route: 048
     Dates: start: 2000
  13. OFLOCET [Suspect]
     Active Substance: OFLOXACIN
     Indication: PROSTATITIS
     Dosage: UNK
     Route: 048
     Dates: start: 2002

REACTIONS (55)
  - Tendon disorder [Not Recovered/Not Resolved]
  - Hypertension [Not Recovered/Not Resolved]
  - Toxicity to various agents [Not Recovered/Not Resolved]
  - Prostatic adenoma [Unknown]
  - Metaplasia [Unknown]
  - Varices oesophageal [Unknown]
  - Anal incontinence [Unknown]
  - Urinary bladder polyp [Unknown]
  - Varicose vein [Unknown]
  - Myopia [Unknown]
  - Rash papular [Unknown]
  - Pain in extremity [Not Recovered/Not Resolved]
  - Pancreatitis [Not Recovered/Not Resolved]
  - Haematuria [Unknown]
  - Tendon pain [Not Recovered/Not Resolved]
  - Small fibre neuropathy [Unknown]
  - Portal hypertension [Unknown]
  - Migraine [Not Recovered/Not Resolved]
  - Chondropathy [Not Recovered/Not Resolved]
  - Sperm analysis abnormal [Unknown]
  - Rhinitis [Unknown]
  - Nasal turbinate hypertrophy [Unknown]
  - Incontinence [Unknown]
  - Tinnitus [Not Recovered/Not Resolved]
  - Blood pressure increased [Not Recovered/Not Resolved]
  - Paraesthesia [Unknown]
  - Headache [Recovered/Resolved]
  - Muscle rupture [Recovered/Resolved with Sequelae]
  - Congestive cardiomyopathy [Unknown]
  - Pancreatitis acute [Unknown]
  - Sleep apnoea syndrome [Unknown]
  - Nocturia [Unknown]
  - Road traffic accident [Unknown]
  - Paraesthesia [Not Recovered/Not Resolved]
  - Hepatic fibrosis [Unknown]
  - Vascular pain [Not Recovered/Not Resolved]
  - Benign prostatic hyperplasia [Unknown]
  - Prostatism [Unknown]
  - Skin disorder [Unknown]
  - Hypermetropia [Unknown]
  - Neuralgia [Unknown]
  - Haematoma [Not Recovered/Not Resolved]
  - Infection [Unknown]
  - Nasal turbinate abnormality [Unknown]
  - Tendonitis [Unknown]
  - Photosensitivity reaction [Unknown]
  - Arnold-Chiari malformation [Unknown]
  - Neuropathy peripheral [Not Recovered/Not Resolved]
  - Prostatitis [Unknown]
  - Urinary incontinence [Unknown]
  - Hypoaesthesia [Unknown]
  - Arthralgia [Not Recovered/Not Resolved]
  - Myalgia [Not Recovered/Not Resolved]
  - Tendon rupture [Unknown]
  - Fatigue [Unknown]

NARRATIVE: CASE EVENT DATE: 2000
